FAERS Safety Report 16233328 (Version 8)
Quarter: 2020Q3

REPORT INFORMATION
  Report Type: Report from Study
  Country: None (occurrence: FR)
  Receive Date: 20190424
  Receipt Date: 20200702
  Transmission Date: 20201102
  Serious: Yes (Hospitalization)
  Sender: FDA-Public Use
  Company Number: FR-ABBVIE-19S-056-2752655-00

PATIENT
  Sex: Female

DRUGS (3)
  1. DUODOPA [Suspect]
     Active Substance: CARBIDOPA\LEVODOPA
     Dosage: CONTINUOUS FLOW RATE DURING THE DAY : 3.8ML/H FROM 7AM TO 3PM AND 4ML/H FROM 3PM TO 8PM
     Route: 050
     Dates: start: 202002, end: 2020
  2. DUODOPA [Suspect]
     Active Substance: CARBIDOPA\LEVODOPA
     Dosage: MD 4 ML,CD FLOW RATE DURING DAY: 3.8ML/H FROM 7AM TO 3PM AND 3.9ML/H FROM 3PM TO 8PM.
     Route: 050
     Dates: start: 202005, end: 2020
  3. DUODOPA [Suspect]
     Active Substance: CARBIDOPA\LEVODOPA
     Indication: PARKINSON^S DISEASE
     Dosage: CONTINOUS FLOW RATE DURING THE DAY??: 3.9 ML/H
     Route: 050
     Dates: start: 201707

REACTIONS (16)
  - Tremor [Unknown]
  - Dyskinesia [Not Recovered/Not Resolved]
  - Mobility decreased [Not Recovered/Not Resolved]
  - Motor dysfunction [Unknown]
  - Middle insomnia [Unknown]
  - Freezing phenomenon [Unknown]
  - Stoma site discharge [Unknown]
  - On and off phenomenon [Unknown]
  - Parkinson^s disease [Unknown]
  - Arthralgia [Not Recovered/Not Resolved]
  - Loss of personal independence in daily activities [Not Recovered/Not Resolved]
  - Dyskinesia [Recovered/Resolved]
  - Terminal insomnia [Unknown]
  - Freezing phenomenon [Not Recovered/Not Resolved]
  - Motor dysfunction [Unknown]
  - Stoma site discharge [Unknown]

NARRATIVE: CASE EVENT DATE: 201911
